FAERS Safety Report 5977555-9 (Version None)
Quarter: 2008Q4

REPORT INFORMATION
  Report Type: 
  Country: None (occurrence: None)
  Receive Date: 20081125
  Receipt Date: 20081113
  Transmission Date: 20090506
  Serious: Yes (Other)
  Sender: FDA-Public Use
  Company Number: 2008S1020412

PATIENT
  Age: 54 Year
  Sex: Female

DRUGS (4)
  1. FENTANYL-100 [Suspect]
     Dosage: EVERY HOUR; TRANSDERMAL
     Route: 062
  2. FENTANYL-100 [Suspect]
     Dosage: EVERY HOUR; TRANSDERMAL
     Route: 062
  3. FENTANYL-100 [Suspect]
     Dosage: EVERY HOUR; TRANSDERMAL
     Route: 062
  4. UNKNOWN [Concomitant]

REACTIONS (2)
  - PRODUCT QUALITY ISSUE [None]
  - RENAL FAILURE CHRONIC [None]
